FAERS Safety Report 13884451 (Version 1)
Quarter: 2017Q3

REPORT INFORMATION
  Report Type: Report from Study
  Country: None (occurrence: US)
  Receive Date: 20170821
  Receipt Date: 20170821
  Transmission Date: 20171127
  Serious: Yes (Hospitalization)
  Sender: FDA-Public Use
  Company Number: US-ABBVIE-17K-163-1986059-00

PATIENT
  Age: 45 Year
  Sex: Male

DRUGS (1)
  1. HUMIRA [Suspect]
     Active Substance: ADALIMUMAB
     Indication: CROHN^S DISEASE
     Route: 058

REACTIONS (10)
  - Abdominal adhesions [Unknown]
  - Crohn^s disease [Unknown]
  - Colonic fistula [Unknown]
  - Infected fistula [Unknown]
  - Enterocutaneous fistula [Unknown]
  - Fatigue [Unknown]
  - Therapeutic response shortened [Unknown]
  - Inflammation [Unknown]
  - Drug effect decreased [Not Recovered/Not Resolved]
  - Pelvic fluid collection [Unknown]

NARRATIVE: CASE EVENT DATE: 20170430
